FAERS Safety Report 10700044 (Version 2)
Quarter: 2015Q1

REPORT INFORMATION
  Report Type: Spontaneous
  Country: JP (occurrence: JP)
  Receive Date: 20150109
  Receipt Date: 20150114
  Transmission Date: 20150721
  Serious: Yes (Hospitalization, Disabling)
  Sender: FDA-Public Use
  Company Number: JP-MERCK-1501JPN001386

PATIENT
  Age: 67 Year
  Sex: Female

DRUGS (4)
  1. PROPACIL [Concomitant]
     Dosage: UNK
  2. REBETOL [Suspect]
     Active Substance: RIBAVIRIN
     Indication: PRODUCT USED FOR UNKNOWN INDICATION
     Dosage: UNK
     Route: 048
     Dates: start: 20140313, end: 20140801
  3. PEGINTRON [Suspect]
     Active Substance: PEGINTERFERON ALFA-2B
     Indication: PRODUCT USED FOR UNKNOWN INDICATION
     Dosage: UNK
     Route: 058
     Dates: start: 20140313, end: 20140801
  4. SIMEPREVIR [Suspect]
     Active Substance: SIMEPREVIR
     Indication: PRODUCT USED FOR UNKNOWN INDICATION
     Dosage: 100 MG ONCE A DAY
     Route: 048
     Dates: start: 20140313, end: 20140604

REACTIONS (1)
  - Anti-neutrophil cytoplasmic antibody positive vasculitis [Recovering/Resolving]

NARRATIVE: CASE EVENT DATE: 2014
